FAERS Safety Report 22343988 (Version 1)
Quarter: 2023Q2

REPORT INFORMATION
  Report Type: Spontaneous
  Country: US (occurrence: None)
  Receive Date: 20230518
  Receipt Date: 20230518
  Transmission Date: 20230721
  Serious: Yes (Other)
  Sender: FDA-Public Use
  Company Number: None

PATIENT
  Age: 68 Year
  Sex: Male
  Weight: 94.5 kg

DRUGS (9)
  1. PAXLOVID [Suspect]
     Active Substance: NIRMATRELVIR\RITONAVIR
     Indication: SARS-CoV-2 test positive
     Dosage: OTHER QUANTITY : 3 TABLET(S);?FREQUENCY : TWICE A DAY;?
     Route: 048
     Dates: start: 20230303, end: 20230308
  2. ATORVASTATIN [Suspect]
     Active Substance: ATORVASTATIN
  3. Coreg 6.25mg twice a day [Concomitant]
  4. Lisinoprel 5mg once a day [Concomitant]
  5. Eliquis 2.5 mg twice a day [Concomitant]
  6. Atorvastatin 80mg [Concomitant]
  7. Aspirin 81 mg once a day [Concomitant]
  8. TYLENOL [Concomitant]
     Active Substance: ACETAMINOPHEN
  9. Colace 50mg [Concomitant]

REACTIONS (4)
  - Myalgia [None]
  - Pain in extremity [None]
  - Arthralgia [None]
  - Back pain [None]
